FAERS Safety Report 8447667 (Version 5)
Quarter: 2013Q1

REPORT INFORMATION
  Report Type: Spontaneous
  Country: US (occurrence: None)
  Receive Date: 20120224
  Receipt Date: 20121004
  Transmission Date: 20140127
  Serious: Yes (Other)
  Sender: FDA-Public Use
  Company Number: 2012031105

PATIENT
  Age: 55 Year
  Sex: Female
  Weight: 60.78 kg

DRUGS (17)
  1. HIZENTRA [Suspect]
     Indication: IMMUNODEFICIENCY COMMON VARIABLE
     Dosage: (8 G 1X/WEEK, 4 GM 20 ML VIAL; 40 ML IN 3 SITES FOR 1-2 HOURS SUBCUTANEOUS)
  2. SINGULAIR [Concomitant]
  3. FAMOTIDINE [Concomitant]
  4. NYSTATIN [Concomitant]
  5. PROAIR (SALBUTAMOL SULFATE) [Concomitant]
  6. EFFEXOR [Concomitant]
  7. ZYRTEC [Concomitant]
  8. PATANASE [Concomitant]
  9. ZOMIG [Concomitant]
  10. VITAMIN D [Concomitant]
  11. FIORICET (AXOTAL) [Concomitant]
  12. LAMICTAL [Concomitant]
  13. TYLENOL EXTRA STRENGTH (PARACETAMOL) [Concomitant]
  14. MULTIVITAMIN (DAILY  MULTIVITAMIN) [Concomitant]
  15. ASPIRIN (ACETYLSALICYLIC ACID) [Concomitant]
  16. DOXYCYCLINE [Concomitant]
  17. BENADRYL (DIPHENHYDRAMINE HYDROCHLORIDE) [Concomitant]

REACTIONS (5)
  - Upper respiratory tract infection [None]
  - Pneumonia [None]
  - Sinusitis [None]
  - Bronchitis [None]
  - Migraine [None]
